FAERS Safety Report 16856614 (Version 1)
Quarter: 2019Q3

REPORT INFORMATION
  Report Type: Spontaneous
  Country: US (occurrence: US)
  Receive Date: 20190926
  Receipt Date: 20190926
  Transmission Date: 20191005
  Serious: Yes (Other)
  Sender: FDA-Public Use
  Company Number: US-JAZZ-2019-US-013269

PATIENT
  Age: 5 Decade
  Sex: Male

DRUGS (1)
  1. SUNOSI [Suspect]
     Active Substance: SOLRIAMFETOL
     Indication: SLEEP APNOEA SYNDROME
     Dosage: 75 MG (STARTING DOSE)

REACTIONS (2)
  - Deja vu [Unknown]
  - Memory impairment [Unknown]
